FAERS Safety Report 7719063-0 (Version None)
Quarter: 2011Q3

REPORT INFORMATION
  Report Type: 
  Country: None (occurrence: None)
  Receive Date: 20110830
  Receipt Date: 20110825
  Transmission Date: 20111222
  Serious: Yes (Other)
  Sender: FDA-Public Use
  Company Number: CH-MERCK-1103USA03529

PATIENT
  Age: 73 Year
  Sex: Female
  Weight: 70 kg

DRUGS (10)
  1. VYTORIN [Suspect]
     Indication: HYPERLIPIDAEMIA
     Dosage: 1 DOSAGE FORM PER DAY IN THE EVENING
     Route: 048
     Dates: start: 20100801, end: 20101201
  2. PLAQUENIL [Concomitant]
     Indication: RHEUMATOID ARTHRITIS
     Dosage: 1 DOSAGE FORM TWICE PER WEEK
     Route: 065
     Dates: start: 20060101, end: 20110101
  3. ZOCOR [Suspect]
     Route: 048
     Dates: start: 20060101
  4. ASPIRIN [Concomitant]
     Route: 065
     Dates: start: 20090101
  5. ACTIVELLE [Suspect]
     Dosage: 1 DOSAGE FORM IN THE MORNING TWICE A WEEK
     Route: 065
     Dates: start: 20000101
  6. PLAVIX [Concomitant]
     Route: 065
  7. ZETIA [Suspect]
     Route: 048
     Dates: start: 20100801, end: 20101201
  8. ATACAND [Concomitant]
     Route: 065
  9. CALCIMAGON D3 [Concomitant]
     Route: 065
  10. ATORVASTATIN CALCIUM [Concomitant]
     Route: 065
     Dates: start: 20060101

REACTIONS (5)
  - HOT FLUSH [None]
  - HYPERHIDROSIS [None]
  - OVARIAN CANCER [None]
  - COLD SWEAT [None]
  - FEELING ABNORMAL [None]
